FAERS Safety Report 5669313-X (Version None)
Quarter: 2008Q1

REPORT INFORMATION
  Report Type: 
  Country: None (occurrence: None)
  Receive Date: 20080317
  Receipt Date: 20080313
  Transmission Date: 20080703
  Serious: Yes (Other)
  Sender: FDA-Public Use
  Company Number: TR-AVENTIS-200720140GDDC

PATIENT
  Sex: Female
  Weight: 90 kg

DRUGS (7)
  1. LANTUS [Suspect]
     Route: 058
     Dates: start: 20070207
  2. AUTOPEN 24 [Suspect]
  3. GLIFIX [Concomitant]
     Route: 048
  4. GLUFORMIN [Concomitant]
     Route: 048
  5. UNKNOWN DRUG [Concomitant]
     Route: 048
  6. DIOVAN [Concomitant]
     Indication: HYPERTENSION
     Route: 048
  7. UNKNOWN DRUG [Concomitant]
     Route: 048

REACTIONS (4)
  - HYPOGLYCAEMIA [None]
  - OEDEMA PERIPHERAL [None]
  - PAIN IN EXTREMITY [None]
  - WEIGHT INCREASED [None]
